FAERS Safety Report 5646541-0 (Version None)
Quarter: 2008Q1

REPORT INFORMATION
  Report Type: 
  Country: None (occurrence: None)
  Receive Date: 20080303
  Receipt Date: 20080222
  Transmission Date: 20080703
  Serious: Yes (Hospitalization)
  Sender: FDA-Public Use
  Company Number: FR-JNJFOC-20080205647

PATIENT
  Age: 4 Decade
  Sex: Female
  Weight: 61 kg

DRUGS (6)
  1. REMICADE [Suspect]
     Route: 042
  2. REMICADE [Suspect]
     Route: 042
  3. REMICADE [Suspect]
     Route: 042
  4. REMICADE [Suspect]
     Indication: CROHN'S DISEASE
     Route: 042
  5. CIMZIA [Concomitant]
     Indication: CROHN'S DISEASE
  6. IMUREL [Concomitant]
     Indication: CROHN'S DISEASE

REACTIONS (2)
  - ANAL FISTULA [None]
  - PERIANAL ABSCESS [None]
